FAERS Safety Report 6059554-4 (Version None)
Quarter: 2009Q1

REPORT INFORMATION
  Report Type: 
  Country: None (occurrence: None)
  Receive Date: 20090130
  Receipt Date: 20090121
  Transmission Date: 20090719
  Serious: Yes (Death)
  Sender: FDA-Public Use
  Company Number: US-JNJFOC-20090105796

PATIENT
  Sex: Male
  Weight: 86.18 kg

DRUGS (11)
  1. DURAGESIC-100 [Suspect]
     Indication: PAIN
     Route: 062
  2. TRAMADOL HCL [Suspect]
     Indication: DRUG USE FOR UNKNOWN INDICATION
  3. OPIATES [Suspect]
     Indication: DRUG USE FOR UNKNOWN INDICATION
  4. PROMETHAZINE [Suspect]
     Indication: DRUG USE FOR UNKNOWN INDICATION
  5. PAROXETINE HCL [Suspect]
     Indication: DRUG USE FOR UNKNOWN INDICATION
  6. AMITRIPTYLINE HCL [Suspect]
     Indication: DRUG USE FOR UNKNOWN INDICATION
  7. CARISOPRODOL [Suspect]
     Indication: DRUG USE FOR UNKNOWN INDICATION
  8. MEPROBAMATE [Suspect]
     Indication: DRUG USE FOR UNKNOWN INDICATION
  9. OXYCODONE HCL [Suspect]
     Indication: DRUG USE FOR UNKNOWN INDICATION
  10. HYDROCODONE [Suspect]
     Indication: DRUG USE FOR UNKNOWN INDICATION
  11. ACETAMINOPHEN [Concomitant]

REACTIONS (2)
  - DRUG TOXICITY [None]
  - INAPPROPRIATE SCHEDULE OF DRUG ADMINISTRATION [None]
